FAERS Safety Report 24671466 (Version 3)
Quarter: 2024Q4

REPORT INFORMATION
  Report Type: Spontaneous
  Country: US (occurrence: US)
  Receive Date: 20241127
  Receipt Date: 20241226
  Transmission Date: 20250114
  Serious: No
  Sender: PFIZER
  Company Number: US-PFIZER INC-PV202400146829

PATIENT
  Age: 77 Year
  Sex: Female

DRUGS (2)
  1. TUKYSA [Suspect]
     Active Substance: TUCATINIB
     Dosage: 300 MG (2 TABLETS OF 150 MG), 2X/DAY
  2. TUKYSA [Suspect]
     Active Substance: TUCATINIB
     Dosage: TAKE TWO TABLETS BY MOUTH TWICE DAILY
     Route: 048

REACTIONS (4)
  - Diarrhoea [Recovering/Resolving]
  - Gait disturbance [Recovering/Resolving]
  - Skin discolouration [Unknown]
  - Intentional product misuse [Unknown]
